FAERS Safety Report 24274009 (Version 1)
Quarter: 2024Q3

REPORT INFORMATION
  Report Type: Spontaneous
  Country: JP (occurrence: JP)
  Receive Date: 20240902
  Receipt Date: 20240902
  Transmission Date: 20241017
  Serious: Yes (Other)
  Sender: EMD SERONO INC
  Company Number: JP-Merck Healthcare KGaA-9244476

PATIENT
  Age: 59 Year
  Sex: Male
  Weight: 74 kg

DRUGS (126)
  1. METGLUCO [Suspect]
     Active Substance: METFORMIN HYDROCHLORIDE
     Indication: Diabetes mellitus
     Route: 048
  2. METGLUCO [Suspect]
     Active Substance: METFORMIN HYDROCHLORIDE
     Route: 048
  3. METGLUCO [Suspect]
     Active Substance: METFORMIN HYDROCHLORIDE
     Route: 048
  4. METGLUCO [Suspect]
     Active Substance: METFORMIN HYDROCHLORIDE
     Route: 048
  5. METGLUCO [Suspect]
     Active Substance: METFORMIN HYDROCHLORIDE
     Route: 048
  6. METGLUCO [Suspect]
     Active Substance: METFORMIN HYDROCHLORIDE
     Route: 048
  7. METGLUCO [Suspect]
     Active Substance: METFORMIN HYDROCHLORIDE
     Route: 048
  8. METGLUCO [Suspect]
     Active Substance: METFORMIN HYDROCHLORIDE
     Route: 048
     Dates: end: 20210901
  9. METGLUCO [Suspect]
     Active Substance: METFORMIN HYDROCHLORIDE
     Route: 048
  10. METGLUCO [Suspect]
     Active Substance: METFORMIN HYDROCHLORIDE
     Route: 048
  11. METGLUCO [Suspect]
     Active Substance: METFORMIN HYDROCHLORIDE
     Route: 048
  12. CLONAZEPAM [Suspect]
     Active Substance: CLONAZEPAM
     Indication: Hallucination, auditory
     Route: 048
  13. CLONAZEPAM [Suspect]
     Active Substance: CLONAZEPAM
     Indication: Paroxysmal perceptual alteration
     Dosage: FREQUENCY TEXT: AS NECESSARY
     Route: 048
  14. CLONAZEPAM [Suspect]
     Active Substance: CLONAZEPAM
     Indication: Stupor
     Route: 048
  15. CLONAZEPAM [Suspect]
     Active Substance: CLONAZEPAM
     Indication: Restless legs syndrome
     Route: 048
  16. CLONAZEPAM [Suspect]
     Active Substance: CLONAZEPAM
     Route: 048
     Dates: start: 20210422, end: 20210526
  17. CLONAZEPAM [Suspect]
     Active Substance: CLONAZEPAM
     Route: 048
     Dates: start: 20210527, end: 20210527
  18. CLONAZEPAM [Suspect]
     Active Substance: CLONAZEPAM
     Dosage: THERAPY END DATE^ 02 JUN 2021
     Route: 048
     Dates: start: 202105
  19. CLONAZEPAM [Suspect]
     Active Substance: CLONAZEPAM
     Dosage: THERAPY START DATE: 03 JUN 2021
     Route: 048
  20. CLONAZEPAM [Suspect]
     Active Substance: CLONAZEPAM
     Route: 048
  21. CLONAZEPAM [Suspect]
     Active Substance: CLONAZEPAM
     Dosage: UP TO 1 MG??FREQUENCY TEXT: AS NECESSARY
     Route: 048
  22. CLONAZEPAM [Suspect]
     Active Substance: CLONAZEPAM
     Dosage: 5 TIMES A DAY?THERAPY END DATE :04-AUG-2021??FREQUENCY TEXT: AS NECESSARY
     Route: 048
  23. CLONAZEPAM [Suspect]
     Active Substance: CLONAZEPAM
     Route: 048
     Dates: start: 20210929, end: 20210929
  24. CLONAZEPAM [Suspect]
     Active Substance: CLONAZEPAM
     Dosage: HALF A TABLET OF LANDSEN??FREQUENCY TEXT: 4 TIMES/DAY
     Route: 048
  25. CLONAZEPAM [Suspect]
     Active Substance: CLONAZEPAM
     Dosage: UPTO 1 MG
     Route: 048
  26. CLONAZEPAM [Suspect]
     Active Substance: CLONAZEPAM
     Dosage: 1-1.25 MG
     Route: 048
  27. CLONAZEPAM [Suspect]
     Active Substance: CLONAZEPAM
     Route: 048
  28. CLONAZEPAM [Suspect]
     Active Substance: CLONAZEPAM
     Dosage: 5 OR 6 TABLETS??FREQUENCY TEXT: SINGLE
     Route: 048
     Dates: start: 20220121, end: 20220121
  29. CLONAZEPAM [Suspect]
     Active Substance: CLONAZEPAM
     Route: 048
  30. CLONAZEPAM [Suspect]
     Active Substance: CLONAZEPAM
     Dosage: DOSE INCREASED TO 4 TABLETS/DAY
     Route: 048
  31. CLONAZEPAM [Suspect]
     Active Substance: CLONAZEPAM
     Route: 048
  32. CLOZARIL [Suspect]
     Active Substance: CLOZAPINE
     Indication: Product used for unknown indication
     Dosage: UNKNOWN
     Route: 048
  33. CLOZARIL [Suspect]
     Active Substance: CLOZAPINE
     Route: 048
  34. CLOZARIL [Suspect]
     Active Substance: CLOZAPINE
     Dosage: UNKNOWN
     Route: 048
  35. PEROSPIRONE HYDROCHLORIDE [Suspect]
     Active Substance: PEROSPIRONE HYDROCHLORIDE
     Indication: Anxiety
     Dosage: 4 TO 8 MG
     Route: 048
  36. PEROSPIRONE HYDROCHLORIDE [Suspect]
     Active Substance: PEROSPIRONE HYDROCHLORIDE
     Indication: Hallucination, auditory
     Route: 048
     Dates: start: 201911
  37. PEROSPIRONE HYDROCHLORIDE [Suspect]
     Active Substance: PEROSPIRONE HYDROCHLORIDE
     Indication: Persistent depressive disorder
     Dosage: FREQUENCY TEXT: AS NECESSARY
     Route: 048
     Dates: start: 201912
  38. PEROSPIRONE HYDROCHLORIDE [Suspect]
     Active Substance: PEROSPIRONE HYDROCHLORIDE
     Route: 048
  39. PEROSPIRONE HYDROCHLORIDE [Suspect]
     Active Substance: PEROSPIRONE HYDROCHLORIDE
     Route: 048
  40. PEROSPIRONE HYDROCHLORIDE [Suspect]
     Active Substance: PEROSPIRONE HYDROCHLORIDE
     Dosage: FREQUENCY TEXT: IN THE MORNING
     Route: 048
     Dates: start: 202012
  41. PEROSPIRONE HYDROCHLORIDE [Suspect]
     Active Substance: PEROSPIRONE HYDROCHLORIDE
     Dosage: FREQUENCY TEXT: AS NECESSARY
     Route: 048
  42. PEROSPIRONE HYDROCHLORIDE [Suspect]
     Active Substance: PEROSPIRONE HYDROCHLORIDE
     Route: 048
  43. PEROSPIRONE HYDROCHLORIDE [Suspect]
     Active Substance: PEROSPIRONE HYDROCHLORIDE
     Dosage: UPTO 20 MG??FREQUENCY TEXT: AS NECESSARY
     Route: 048
  44. PEROSPIRONE HYDROCHLORIDE [Suspect]
     Active Substance: PEROSPIRONE HYDROCHLORIDE
     Dosage: UPTO 16 MG??FREQUENCY TEXT: AS NECESSARY
     Route: 048
  45. PEROSPIRONE HYDROCHLORIDE [Suspect]
     Active Substance: PEROSPIRONE HYDROCHLORIDE
     Dosage: ALLOWED TO TAKE IT 5 TABLETS A DAY
     Route: 048
     Dates: start: 20210810
  46. PEROSPIRONE HYDROCHLORIDE [Suspect]
     Active Substance: PEROSPIRONE HYDROCHLORIDE
     Route: 048
     Dates: start: 20210829
  47. PEROSPIRONE HYDROCHLORIDE [Suspect]
     Active Substance: PEROSPIRONE HYDROCHLORIDE
     Route: 048
     Dates: start: 20210830
  48. PEROSPIRONE HYDROCHLORIDE [Suspect]
     Active Substance: PEROSPIRONE HYDROCHLORIDE
     Dosage: UPTO 16 MG
     Route: 048
  49. PEROSPIRONE HYDROCHLORIDE [Suspect]
     Active Substance: PEROSPIRONE HYDROCHLORIDE
     Route: 048
     Dates: start: 20211011, end: 20211011
  50. PEROSPIRONE HYDROCHLORIDE [Suspect]
     Active Substance: PEROSPIRONE HYDROCHLORIDE
     Dosage: THERAPY START DATE: 27 OCT 2021?THERAPY END DATE: 27 OCT 2021
     Route: 048
  51. PEROSPIRONE HYDROCHLORIDE [Suspect]
     Active Substance: PEROSPIRONE HYDROCHLORIDE
     Route: 048
  52. PEROSPIRONE HYDROCHLORIDE [Suspect]
     Active Substance: PEROSPIRONE HYDROCHLORIDE
     Dosage: DOSE DECREASED
     Route: 048
  53. PEROSPIRONE HYDROCHLORIDE [Suspect]
     Active Substance: PEROSPIRONE HYDROCHLORIDE
     Dosage: UP TO 8MG
     Route: 048
  54. PEROSPIRONE HYDROCHLORIDE [Suspect]
     Active Substance: PEROSPIRONE HYDROCHLORIDE
     Dosage: 4MG WAS ALLOWED TO TAKE UP TO TWICE DAILY AS NEEDED
     Route: 048
  55. AMLODIPINE BESYLATE [Suspect]
     Active Substance: AMLODIPINE BESYLATE
     Indication: Hypertension
     Route: 048
  56. AMLODIPINE BESYLATE [Suspect]
     Active Substance: AMLODIPINE BESYLATE
     Route: 048
  57. AMLODIPINE BESYLATE [Suspect]
     Active Substance: AMLODIPINE BESYLATE
     Route: 048
  58. AMLODIPINE BESYLATE [Suspect]
     Active Substance: AMLODIPINE BESYLATE
     Route: 048
     Dates: start: 202006
  59. AMLODIPINE BESYLATE [Suspect]
     Active Substance: AMLODIPINE BESYLATE
     Route: 048
  60. AMLODIPINE BESYLATE [Suspect]
     Active Substance: AMLODIPINE BESYLATE
     Route: 048
  61. AMLODIPINE BESYLATE [Suspect]
     Active Substance: AMLODIPINE BESYLATE
     Route: 048
  62. AMLODIPINE BESYLATE [Suspect]
     Active Substance: AMLODIPINE BESYLATE
     Route: 048
     Dates: start: 20210405
  63. AMLODIPINE BESYLATE [Suspect]
     Active Substance: AMLODIPINE BESYLATE
     Route: 048
     Dates: start: 20210406
  64. AMLODIPINE BESYLATE [Suspect]
     Active Substance: AMLODIPINE BESYLATE
     Route: 048
     Dates: start: 20210415
  65. AMLODIPINE BESYLATE [Suspect]
     Active Substance: AMLODIPINE BESYLATE
     Route: 048
     Dates: start: 20210517, end: 20210518
  66. AMLODIPINE BESYLATE [Suspect]
     Active Substance: AMLODIPINE BESYLATE
     Route: 048
     Dates: start: 20210522
  67. AMLODIPINE BESYLATE [Suspect]
     Active Substance: AMLODIPINE BESYLATE
     Route: 048
  68. AMLODIPINE BESYLATE [Suspect]
     Active Substance: AMLODIPINE BESYLATE
     Route: 048
  69. AMLODIPINE BESYLATE [Suspect]
     Active Substance: AMLODIPINE BESYLATE
     Route: 048
  70. AMLODIPINE BESYLATE [Suspect]
     Active Substance: AMLODIPINE BESYLATE
     Dosage: 2.5 TO 10 MG
     Route: 048
  71. AMLODIPINE BESYLATE [Suspect]
     Active Substance: AMLODIPINE BESYLATE
     Route: 048
  72. AMLODIPINE BESYLATE [Suspect]
     Active Substance: AMLODIPINE BESYLATE
     Dosage: UP TO 10 MG
     Route: 048
  73. AMLODIPINE BESYLATE [Suspect]
     Active Substance: AMLODIPINE BESYLATE
     Route: 048
  74. AMLODIPINE BESYLATE [Suspect]
     Active Substance: AMLODIPINE BESYLATE
     Route: 048
  75. AMLODIPINE BESYLATE [Suspect]
     Active Substance: AMLODIPINE BESYLATE
     Route: 048
  76. RISPERIDONE [Suspect]
     Active Substance: RISPERIDONE
     Indication: Apathy
     Dosage: FOR 15 TO 20 YEARS??FREQUENCY TEXT: IN THE MORNING AND BEFORE BEDTIME
     Route: 048
  77. RISPERIDONE [Suspect]
     Active Substance: RISPERIDONE
     Indication: Anxiety
     Route: 048
  78. RISPERIDONE [Suspect]
     Active Substance: RISPERIDONE
     Indication: Apathy
     Route: 048
  79. RISPERIDONE [Suspect]
     Active Substance: RISPERIDONE
     Route: 048
  80. RISPERIDONE [Suspect]
     Active Substance: RISPERIDONE
     Route: 048
  81. RISPERIDONE [Suspect]
     Active Substance: RISPERIDONE
     Route: 048
  82. RISPERIDONE [Suspect]
     Active Substance: RISPERIDONE
     Dosage: UPTO 2 MG
     Route: 048
  83. RISPERIDONE [Suspect]
     Active Substance: RISPERIDONE
     Route: 048
  84. DIOVAN [Suspect]
     Active Substance: VALSARTAN
     Indication: Hypertension
     Route: 048
  85. DIOVAN [Suspect]
     Active Substance: VALSARTAN
     Dosage: 80 MG AND 40 MG
     Route: 048
  86. DIOVAN [Suspect]
     Active Substance: VALSARTAN
     Route: 048
  87. DIOVAN [Suspect]
     Active Substance: VALSARTAN
     Route: 048
  88. DIOVAN [Suspect]
     Active Substance: VALSARTAN
     Route: 048
  89. LORAZEPAM [Suspect]
     Active Substance: LORAZEPAM
     Indication: Product used for unknown indication
  90. TOCOPHERYL NICOTINATE, D-.ALPHA. [Suspect]
     Active Substance: TOCOPHERYL NICOTINATE, D-.ALPHA.
     Indication: Product used for unknown indication
     Route: 048
  91. TOCOPHERYL NICOTINATE, D-.ALPHA. [Suspect]
     Active Substance: TOCOPHERYL NICOTINATE, D-.ALPHA.
     Route: 048
     Dates: start: 20200910, end: 20210714
  92. TRAZODONE HYDROCHLORIDE [Suspect]
     Active Substance: TRAZODONE HYDROCHLORIDE
     Indication: Product used for unknown indication
     Dosage: UNKNOWN DOSAGE
     Route: 048
  93. LOXOPROFEN SODIUM [Suspect]
     Active Substance: LOXOPROFEN SODIUM
     Indication: Product used for unknown indication
     Route: 048
  94. AZELASTINE HYDROCHLORIDE [Suspect]
     Active Substance: AZELASTINE HYDROCHLORIDE
     Indication: Rhinitis allergic
     Route: 048
  95. ETHYL LOFLAZEPATE [Suspect]
     Active Substance: ETHYL LOFLAZEPATE
     Indication: Product used for unknown indication
     Dosage: UPTO 2 MG
     Route: 048
  96. CEFACLOR [Suspect]
     Active Substance: CEFACLOR
     Indication: Product used for unknown indication
     Dosage: UNK
     Route: 048
  97. VALSARTAN [Concomitant]
     Active Substance: VALSARTAN
     Indication: Hypertension
  98. AMARYL [Concomitant]
     Active Substance: GLIMEPIRIDE
     Indication: Diabetes mellitus
  99. VOGLIBOSE [Concomitant]
     Active Substance: VOGLIBOSE
     Indication: Diabetes mellitus
  100. INSULIN NOS [Concomitant]
     Active Substance: INSULIN NOS
     Indication: Diabetes mellitus
  101. RIVOTRIL [Concomitant]
     Active Substance: CLONAZEPAM
     Indication: Product used for unknown indication
  102. RIVOTRIL [Concomitant]
     Active Substance: CLONAZEPAM
     Dosage: ORAL DRUG UNSPECIFIED FORM?UNK
     Route: 048
  103. LITHIUM CARBONATE [Concomitant]
     Active Substance: LITHIUM CARBONATE
     Indication: Persistent depressive disorder
     Dosage: UNK
     Route: 048
  104. REXULTI [Concomitant]
     Active Substance: BREXPIPRAZOLE
     Indication: Product used for unknown indication
  105. RISPERDAL [Concomitant]
     Active Substance: RISPERIDONE
     Indication: Product used for unknown indication
  106. BROMAZEPAM [Concomitant]
     Active Substance: BROMAZEPAM
     Indication: Product used for unknown indication
  107. CYMBALTA [Concomitant]
     Active Substance: DULOXETINE HYDROCHLORIDE
     Indication: Product used for unknown indication
     Route: 048
     Dates: start: 201911
  108. CYMBALTA [Concomitant]
     Active Substance: DULOXETINE HYDROCHLORIDE
     Dosage: UNKNOWN DOSAGE
     Route: 048
  109. CLOXAZOLAM [Concomitant]
     Active Substance: CLOXAZOLAM
     Indication: Product used for unknown indication
     Dosage: ORAL DRUG UNSPECIFIED FORM
  110. VIBEGRON [Concomitant]
     Active Substance: VIBEGRON
     Indication: Product used for unknown indication
  111. ETHYL LOFLAZEPATE [Concomitant]
     Active Substance: ETHYL LOFLAZEPATE
     Indication: Stupor
     Route: 048
  112. ETHYL LOFLAZEPATE [Concomitant]
     Active Substance: ETHYL LOFLAZEPATE
     Route: 048
  113. ETHYL LOFLAZEPATE [Concomitant]
     Active Substance: ETHYL LOFLAZEPATE
     Route: 048
     Dates: start: 202006
  114. ETHYL LOFLAZEPATE [Concomitant]
     Active Substance: ETHYL LOFLAZEPATE
     Route: 048
  115. ETHYL LOFLAZEPATE [Concomitant]
     Active Substance: ETHYL LOFLAZEPATE
     Dosage: UP TO 2 MG??FREQUENCY TEXT: AS NECESSARY
     Route: 048
  116. ETHYL LOFLAZEPATE [Concomitant]
     Active Substance: ETHYL LOFLAZEPATE
     Route: 048
  117. ETHYL LOFLAZEPATE [Concomitant]
     Active Substance: ETHYL LOFLAZEPATE
     Route: 048
     Dates: start: 20210929, end: 20210929
  118. ETHYL LOFLAZEPATE [Concomitant]
     Active Substance: ETHYL LOFLAZEPATE
     Route: 048
     Dates: start: 20211005, end: 20211005
  119. ETHYL LOFLAZEPATE [Concomitant]
     Active Substance: ETHYL LOFLAZEPATE
     Dosage: UP TO 2 MG?ORAL DRUG UNSPECIFIED FORM
     Route: 048
  120. ETHYL LOFLAZEPATE [Concomitant]
     Active Substance: ETHYL LOFLAZEPATE
     Dosage: 2 TABLETS/DAY
     Route: 048
  121. MIRABEGRON [Concomitant]
     Active Substance: MIRABEGRON
     Indication: Product used for unknown indication
  122. VILDAGLIPTIN [Concomitant]
     Active Substance: VILDAGLIPTIN
     Indication: Diabetes mellitus
  123. VITAMIN E [Concomitant]
     Active Substance: .ALPHA.-TOCOPHEROL
     Indication: Dyskinesia
  124. NEXIUM [Concomitant]
     Active Substance: ESOMEPRAZOLE MAGNESIUM
     Indication: Product used for unknown indication
  125. BELSOMRA [Concomitant]
     Active Substance: SUVOREXANT
     Indication: Product used for unknown indication
  126. TELMISARTAN [Concomitant]
     Active Substance: TELMISARTAN
     Indication: Product used for unknown indication

REACTIONS (52)
  - Haemorrhage [Unknown]
  - Blood iron abnormal [Unknown]
  - Hallucination, auditory [Recovered/Resolved]
  - Ulcer haemorrhage [Recovered/Resolved]
  - Cerebral infarction [Unknown]
  - Tinnitus [Unknown]
  - Dizziness postural [Unknown]
  - Hypertension [Unknown]
  - Dyskinesia [Unknown]
  - Vasodilatation [Unknown]
  - Increased appetite [Unknown]
  - Respiration abnormal [Unknown]
  - Fall [Unknown]
  - Balance disorder [Unknown]
  - Osteoarthritis [Recovering/Resolving]
  - Akathisia [Unknown]
  - Palpitations [Unknown]
  - Discouragement [Unknown]
  - Dysphonia [Recovered/Resolved]
  - Suspected COVID-19 [Unknown]
  - Pyrexia [Unknown]
  - Malaise [Unknown]
  - Anxiety [Unknown]
  - Depressed mood [Recovered/Resolved]
  - Apathy [Recovered/Resolved]
  - Stupor [Unknown]
  - Mood altered [Recovered/Resolved]
  - Fatigue [Unknown]
  - Pleurothotonus [Unknown]
  - Back pain [Unknown]
  - Abulia [Unknown]
  - Libido decreased [Unknown]
  - Anaemia [Recovered/Resolved]
  - Muscular weakness [Unknown]
  - Dysarthria [Unknown]
  - Insomnia [Unknown]
  - Dysphonia [Unknown]
  - Somnolence [Unknown]
  - Weight decreased [Unknown]
  - Blood pressure increased [Unknown]
  - Arthralgia [Unknown]
  - Irritability [Unknown]
  - Skin laceration [Unknown]
  - Balance disorder [Unknown]
  - Dysstasia [Recovered/Resolved]
  - Musculoskeletal stiffness [Recovered/Resolved]
  - Nausea [Unknown]
  - Drug ineffective [Unknown]
  - Incorrect dose administered [Unknown]
  - Off label use [Unknown]
  - Medication error [Unknown]
  - Wrong technique in product usage process [Unknown]

NARRATIVE: CASE EVENT DATE: 20210101
